FAERS Safety Report 5911629-3 (Version None)
Quarter: 2008Q4

REPORT INFORMATION
  Report Type: 
  Country: None (occurrence: None)
  Receive Date: 20081003
  Receipt Date: 20080918
  Transmission Date: 20090506
  Serious: Yes (Other)
  Sender: FDA-Public Use
  Company Number: 238936J08USA

PATIENT
  Age: 43 Year
  Sex: Female

DRUGS (2)
  1. REBIF [Suspect]
     Indication: MULTIPLE SCLEROSIS
     Dosage: 44 MCG, 3 IN 1 WEEKS, SUBCUTANEOUS
     Route: 058
     Dates: start: 20080814
  2. TYLENOL (PARACETAMOL0 [Concomitant]

REACTIONS (4)
  - CHOLECYSTECTOMY [None]
  - DISEASE RECURRENCE [None]
  - MULTIPLE SCLEROSIS [None]
  - PROCEDURAL VOMITING [None]
